FAERS Safety Report 5109865-1 (Version None)
Quarter: 2006Q3

REPORT INFORMATION
  Report Type: 
  Country: None (occurrence: None)
  Receive Date: 20060918
  Receipt Date: 20060918
  Transmission Date: 20061208
  Serious: Yes (Hospitalization)
  Sender: FDA-Public Use
  Company Number: None

PATIENT
  Sex: Male

DRUGS (10)
  1. GLEEVEC [Suspect]
     Indication: GLIOBLASTOMA MULTIFORME
     Dosage: 500 MG QD
     Dates: start: 20060802, end: 20060913
  2. HYDROXYUREA [Suspect]
     Dosage: 500 MG BID
  3. RADO01 [Suspect]
     Indication: GLIOBLASTOMA MULTIFORME
     Dosage: 2.5 MG QOD
     Dates: start: 20060627, end: 20060913
  4. DECADRON [Concomitant]
  5. DILANTIN [Concomitant]
  6. PROTONIX [Concomitant]
  7. SYNTHROID [Concomitant]
  8. SENOKOT [Concomitant]
  9. TRICOR [Concomitant]
  10. MEPRON [Concomitant]

REACTIONS (9)
  - ANTICONVULSANT DRUG LEVEL BELOW THERAPEUTIC [None]
  - CONVULSION [None]
  - GRAND MAL CONVULSION [None]
  - HYPOALBUMINAEMIA [None]
  - INCOHERENT [None]
  - LETHARGY [None]
  - MENTAL STATUS CHANGES [None]
  - NEOPLASM PROGRESSION [None]
  - RECTAL HAEMORRHAGE [None]
